FAERS Safety Report 11643624 (Version 1)
Quarter: 2015Q4

REPORT INFORMATION
  Report Type: Spontaneous
  Country: US (occurrence: None)
  Receive Date: 20151019
  Receipt Date: 20151019
  Transmission Date: 20160304
  Serious: Yes (Other)
  Sender: FDA-Public Use
  Company Number: None

PATIENT
  Age: 62 Year
  Sex: Male
  Weight: 79 kg

DRUGS (1)
  1. EPHEDRINE 50 MG/ML [Suspect]
     Active Substance: EPHEDRINE
     Indication: HEART RATE ABNORMAL
     Dosage: 50 MG/ML
     Route: 042
     Dates: start: 20151016, end: 20151016

REACTIONS (2)
  - Product quality issue [None]
  - Heart rate decreased [None]

NARRATIVE: CASE EVENT DATE: 20151016
